FAERS Safety Report 14799616 (Version 1)
Quarter: 2018Q2

REPORT INFORMATION
  Report Type: Other
  Country: CA (occurrence: CA)
  Receive Date: 20180424
  Receipt Date: 20180424
  Transmission Date: 20180711
  Serious: Yes (Other)
  Sender: FDA-Public Use
  Company Number: CA-APOTEX-2018AP010532

PATIENT
  Sex: Male

DRUGS (10)
  1. OXYCODONE [Suspect]
     Active Substance: OXYCODONE
     Indication: TENDONITIS
     Dosage: UNK
     Route: 065
  2. PERCOCET                           /00446701/ [Suspect]
     Active Substance: ACETAMINOPHEN\OXYCODONE HYDROCHLORIDE\OXYCODONE TEREPHTHALATE
     Indication: TENDONITIS
     Dosage: UNK
     Route: 065
  3. FENTANYL. [Suspect]
     Active Substance: FENTANYL
     Indication: ROTATOR CUFF SYNDROME
  4. OXYCODONE [Suspect]
     Active Substance: OXYCODONE
     Indication: ROTATOR CUFF SYNDROME
  5. ACETAMINOPHEN W/CAFFEINE/DIHYDROCODEINE [Suspect]
     Active Substance: ACETAMINOPHEN\CAFFEINE\DIHYDROCODEINE BITARTRATE
     Indication: TENDONITIS
     Dosage: UNK
     Route: 065
  6. MORPHINE [Suspect]
     Active Substance: MORPHINE
     Indication: TENDONITIS
     Dosage: UNK
     Route: 065
  7. PERCOCET                           /00446701/ [Suspect]
     Active Substance: ACETAMINOPHEN\OXYCODONE HYDROCHLORIDE\OXYCODONE TEREPHTHALATE
     Indication: ROTATOR CUFF SYNDROME
  8. FENTANYL. [Suspect]
     Active Substance: FENTANYL
     Indication: TENDONITIS
     Dosage: UNK
     Route: 065
  9. ACETAMINOPHEN W/CAFFEINE/DIHYDROCODEINE [Suspect]
     Active Substance: ACETAMINOPHEN\CAFFEINE\DIHYDROCODEINE BITARTRATE
     Indication: ROTATOR CUFF SYNDROME
  10. MORPHINE [Suspect]
     Active Substance: MORPHINE
     Indication: ROTATOR CUFF SYNDROME

REACTIONS (2)
  - Drug dependence [Unknown]
  - Drug diversion [Unknown]
